FAERS Safety Report 4274713-9 (Version None)
Quarter: 2004Q1

REPORT INFORMATION
  Report Type: 
  Country: None (occurrence: None)
  Receive Date: 20040120
  Receipt Date: 20040120
  Transmission Date: 20041129
  Serious: Yes (Other)
  Sender: FDA-Public Use
  Company Number: None

PATIENT
  Age: 33 Year
  Sex: Female
  Weight: 63.5036 kg

DRUGS (1)
  1. AVELOX [Suspect]
     Indication: INFECTION
     Dosage: 1 24 HRS ORAL
     Route: 048

REACTIONS (4)
  - DYSPNOEA [None]
  - THROAT TIGHTNESS [None]
  - TREMOR [None]
  - URTICARIA [None]
